FAERS Safety Report 4450614-8 (Version None)
Quarter: 2004Q3

REPORT INFORMATION
  Report Type: 
  Country: None (occurrence: None)
  Receive Date: 20040914
  Receipt Date: 20040825
  Transmission Date: 20050211
  Serious: Yes (Other)
  Sender: FDA-Public Use
  Company Number: DSA_70390_2004

PATIENT
  Age: 33 Year
  Sex: Female

DRUGS (1)
  1. DARVOCET-N 100 [Suspect]

REACTIONS (1)
  - COLECTOMY [None]
